FAERS Safety Report 11755355 (Version 2)
Quarter: 2017Q1

REPORT INFORMATION
  Report Type: Report from Study
  Country: JP (occurrence: JP)
  Receive Date: 20151119
  Receipt Date: 20170102
  Transmission Date: 20170428
  Serious: Yes (Hospitalization)
  Sender: FDA-Public Use
  Company Number: JP-ASTRAZENECA-2015SE85536

PATIENT
  Age: 28563 Day
  Sex: Male
  Weight: 63 kg

DRUGS (15)
  1. VANDETANIB. [Suspect]
     Active Substance: VANDETANIB
     Indication: THYROID CANCER
     Route: 048
     Dates: start: 20131024, end: 20141130
  2. VANDETANIB. [Suspect]
     Active Substance: VANDETANIB
     Indication: THYROID CANCER
     Route: 048
     Dates: start: 20141202, end: 20150502
  3. CRAVIT [Concomitant]
     Active Substance: LEVOFLOXACIN
     Indication: EYE DISCHARGE
     Dosage: 3 TIMES DAILY
     Route: 047
     Dates: start: 20131218, end: 20140129
  4. SP TROCHES [Concomitant]
     Active Substance: DEQUALINIUM CHLORIDE
     Indication: OROPHARYNGEAL PAIN
     Route: 048
     Dates: start: 20140327
  5. VANDETANIB. [Suspect]
     Active Substance: VANDETANIB
     Indication: THYROID CANCER
     Route: 048
     Dates: start: 20150504, end: 20150819
  6. SODIUM HYALURONATE [Concomitant]
     Active Substance: HYALURONATE SODIUM
     Indication: OSTEOARTHRITIS
     Route: 014
     Dates: start: 2013, end: 20150902
  7. CRAVIT [Concomitant]
     Active Substance: LEVOFLOXACIN
     Indication: EYE DISCHARGE
     Dosage: 3 TIMES DAILY
     Route: 047
     Dates: start: 20140303
  8. AZILVA [Concomitant]
     Active Substance: AZILSARTAN KAMEDOXOMIL
     Indication: HYPERTENSION
     Route: 048
     Dates: start: 20141210, end: 20150819
  9. ASPARA [Concomitant]
     Active Substance: CALCIUM ASPARTATE
     Indication: HYPOCALCAEMIA
     Route: 048
     Dates: start: 20150827
  10. SP TROCHES [Concomitant]
     Active Substance: DEQUALINIUM CHLORIDE
     Indication: OROPHARYNGEAL PAIN
     Route: 002
     Dates: start: 20140702
  11. ALFAROL [Concomitant]
     Active Substance: ALFACALCIDOL
     Indication: HYPOCALCAEMIA
     Route: 048
     Dates: start: 20150825
  12. NORVASC [Concomitant]
     Active Substance: AMLODIPINE BESYLATE
     Indication: HYPERTENSION
     Route: 048
     Dates: start: 20130925, end: 20150819
  13. INTEBAN [Concomitant]
     Active Substance: INDOMETHACIN
     Indication: OSTEOARTHRITIS
     Route: 003
     Dates: end: 20150902
  14. METHYLCOBAL [Concomitant]
     Active Substance: METHYLCOBALAMIN
     Indication: PARALYSIS RECURRENT LARYNGEAL NERVE
     Route: 048
     Dates: start: 20131127
  15. THYRADIN-S [Concomitant]
     Active Substance: LEVOTHYROXINE
     Indication: HYPOTHYROIDISM
     Route: 048
     Dates: start: 20140115

REACTIONS (1)
  - Urinary tract obstruction [Recovered/Resolved]

NARRATIVE: CASE EVENT DATE: 20150902
